FAERS Safety Report 8949464 (Version 1)
Quarter: 2012Q4

REPORT INFORMATION
  Report Type: 
  Country: US (occurrence: US)
  Receive Date: 20121206
  Receipt Date: 20121206
  Transmission Date: 20130627
  Serious: No
  Sender: FDA-Public Use
  Company Number: US-009507513-1211USA011776

PATIENT
  Sex: Female

DRUGS (1)
  1. NASONEX [Suspect]
     Dosage: Taken one spray in each nostril once every night
     Route: 045
     Dates: start: 20121018

REACTIONS (3)
  - Underdose [Unknown]
  - Drug dose omission [Unknown]
  - Product quality issue [Unknown]
